FAERS Safety Report 4578068-1 (Version None)
Quarter: 2005Q1

REPORT INFORMATION
  Report Type: 
  Country: None (occurrence: None)
  Receive Date: 20050127
  Receipt Date: 20040901
  Transmission Date: 20050727
  Serious: No
  Sender: FDA-Public Use
  Company Number: USA040977114

PATIENT
  Age: 44 Year
  Sex: Female

DRUGS (1)
  1. STRATTERA [Suspect]
     Indication: ATTENTION DEFICIT/HYPERACTIVITY DISORDER
     Dosage: 40 MG DAY
     Dates: start: 20040616, end: 20040830

REACTIONS (6)
  - BITE [None]
  - FEELING ABNORMAL [None]
  - HYPERSOMNIA [None]
  - LIP DRY [None]
  - RASH [None]
  - SWELLING FACE [None]
